FAERS Safety Report 4811023-2 (Version None)
Quarter: 2005Q4

REPORT INFORMATION
  Report Type: 
  Country: None (occurrence: None)
  Receive Date: 20051027
  Receipt Date: 20051018
  Transmission Date: 20060501
  Serious: Yes (Other)
  Sender: FDA-Public Use
  Company Number: US-JNJFOC-20051003976

PATIENT
  Sex: Female
  Weight: 58.24 kg

DRUGS (13)
  1. REMICADE [Suspect]
     Route: 042
  2. REMICADE [Suspect]
     Indication: RHEUMATOID ARTHRITIS
     Route: 042
  3. METHOTREXATE [Concomitant]
  4. PLAQUENIL [Concomitant]
  5. MOBIC [Concomitant]
  6. SYNTHROID [Concomitant]
  7. CELEBREX [Concomitant]
     Dosage: 200-400 MG DAILY AS NEEDED.
  8. FOLIC ACID [Concomitant]
  9. ZYRTEC [Concomitant]
  10. PREDNISONE [Concomitant]
     Route: 048
  11. AVISTA [Concomitant]
  12. TENORMIN [Concomitant]
  13. ZOCOR [Concomitant]

REACTIONS (3)
  - CARDIOMYOPATHY [None]
  - EJECTION FRACTION DECREASED [None]
  - WEIGHT DECREASED [None]
